FAERS Safety Report 13383906 (Version 1)
Quarter: 2017Q1

REPORT INFORMATION
  Report Type: Spontaneous
  Country: US (occurrence: US)
  Receive Date: 20170329
  Receipt Date: 20170329
  Transmission Date: 20170429
  Serious: No
  Sender: FDA-Public Use
  Company Number: US-OTONOMY INC.-2017OTO00002

PATIENT

DRUGS (1)
  1. OTIPRIO [Suspect]
     Active Substance: CIPROFLOXACIN
     Route: 001

REACTIONS (1)
  - Device occlusion [Unknown]
